FAERS Safety Report 8840457 (Version 1)
Quarter: 2012Q4

REPORT INFORMATION
  Report Type: 
  Country: US (occurrence: US)
  Receive Date: 20121015
  Receipt Date: 20121015
  Transmission Date: 20130627
  Serious: Yes (Other)
  Sender: FDA-Public Use
  Company Number: US-ROCHE-1140325

PATIENT
  Sex: Female
  Weight: 46.9 kg

DRUGS (1)
  1. PROTROPIN [Suspect]
     Indication: GROWTH HORMONE DEFICIENCY
     Dosage: 0.54 ml
     Route: 058
     Dates: start: 19951102

REACTIONS (2)
  - Cardiac disorder [Unknown]
  - Migraine [Unknown]
